FAERS Safety Report 13663999 (Version 1)
Quarter: 2017Q2

REPORT INFORMATION
  Report Type: Spontaneous
  Country: US (occurrence: US)
  Receive Date: 20170618
  Receipt Date: 20170618
  Transmission Date: 20170830
  Serious: Yes (Life-Threatening, Disabling)
  Sender: FDA-Public Use
  Company Number: None

PATIENT
  Age: 40 Year
  Sex: Female
  Weight: 121.5 kg

DRUGS (5)
  1. CLONAZEPAM. [Suspect]
     Active Substance: CLONAZEPAM
     Indication: DEPRESSION
     Dosage: ?          QUANTITY:0.5 TABLET(S);?
     Route: 048
     Dates: start: 20060601, end: 20140101
  2. XANAX [Suspect]
     Active Substance: ALPRAZOLAM
     Indication: DIZZINESS
     Dosage: ?          QUANTITY:1 TABLET(S);?
     Route: 048
     Dates: start: 19991201, end: 20060601
  3. CLONAZEPAM. [Suspect]
     Active Substance: CLONAZEPAM
     Indication: DIZZINESS
     Dosage: ?          QUANTITY:0.5 TABLET(S);?
     Route: 048
     Dates: start: 20060601, end: 20140101
  4. VITAMIN D3 [Concomitant]
     Active Substance: CHOLECALCIFEROL
  5. XANAX [Suspect]
     Active Substance: ALPRAZOLAM
     Indication: DEPRESSION
     Dosage: ?          QUANTITY:1 TABLET(S);?
     Route: 048
     Dates: start: 19991201, end: 20060601

REACTIONS (16)
  - Feeling abnormal [None]
  - Hyperacusis [None]
  - Photophobia [None]
  - Malaise [None]
  - Impaired work ability [None]
  - Depression [None]
  - Endocrine disorder [None]
  - Crying [None]
  - Motion sickness [None]
  - Nervous system disorder [None]
  - Drug resistance [None]
  - Drug ineffective [None]
  - Impaired self-care [None]
  - Tearfulness [None]
  - Gait disturbance [None]
  - Weight increased [None]

NARRATIVE: CASE EVENT DATE: 20140129
